FAERS Safety Report 23773771 (Version 1)
Quarter: 2024Q2

REPORT INFORMATION
  Report Type: Spontaneous
  Country: US (occurrence: US)
  Receive Date: 20240423
  Receipt Date: 20240423
  Transmission Date: 20240716
  Serious: No
  Sender: FDA-Public Use
  Company Number: US-TEVA-VS-3169365

PATIENT
  Age: 23 Year
  Sex: Female
  Weight: 58.97 kg

DRUGS (1)
  1. AJOVY [Suspect]
     Active Substance: FREMANEZUMAB-VFRM
     Indication: Migraine
     Dosage: 225MG/1.5ML
     Route: 065
     Dates: start: 202308

REACTIONS (4)
  - Rash [Recovered/Resolved]
  - Injection site erythema [Unknown]
  - Injection site vesicles [Unknown]
  - Injection site swelling [Unknown]
